FAERS Safety Report 7042677-0 (Version None)
Quarter: 2010Q3

REPORT INFORMATION
  Report Type: 
  Country: None (occurrence: None)
  Receive Date: 20100929
  Receipt Date: 20100729
  Transmission Date: 20110219
  Serious: No
  Sender: FDA-Public Use
  Company Number: US-WYE-H16693910

PATIENT
  Age: 61 Year
  Sex: Female
  Weight: 90.8 kg

DRUGS (11)
  1. PRISTIQ [Suspect]
     Indication: DEPRESSION
     Dosage: 50 MG 1X PER 2 DAY; 50 MG 1X PER 1 DAY
     Dates: start: 20100101, end: 20100723
  2. PRISTIQ [Suspect]
     Indication: DEPRESSION
     Dosage: 50 MG 1X PER 2 DAY; 50 MG 1X PER 1 DAY
     Dates: start: 20100724
  3. LANSOPRAZOLE [Concomitant]
  4. COZAAR [Concomitant]
  5. SINGULAIR [Concomitant]
  6. CLARITIN [Concomitant]
  7. ZYRTEC [Concomitant]
  8. VERAPAMIL HYDROCHLORIDE [Concomitant]
  9. SYNTHROID [Concomitant]
  10. ADVAIR DISKUS 100/50 [Concomitant]
  11. VENTOLIN [Concomitant]

REACTIONS (3)
  - BACK INJURY [None]
  - DRUG WITHDRAWAL SYNDROME [None]
  - NAUSEA [None]
